FAERS Safety Report 20833346 (Version 1)
Quarter: 2022Q2

REPORT INFORMATION
  Report Type: Report from Study
  Country: BR (occurrence: BR)
  Receive Date: 20220516
  Receipt Date: 20220516
  Transmission Date: 20220721
  Serious: Yes (Other)
  Sender: FDA-Public Use
  Company Number: BR-JNJFOC-20220521911

PATIENT
  Sex: Male
  Weight: 60 kg

DRUGS (1)
  1. REMICADE [Suspect]
     Active Substance: INFLIXIMAB
     Indication: Crohn^s disease
     Dosage: TREATMENT START DATE WAS ALSO REPORTED AS FEB-2016.
     Route: 042
     Dates: start: 20160318, end: 202006

REACTIONS (2)
  - Gastrointestinal lymphoma [Unknown]
  - Pain [Unknown]
